FAERS Safety Report 4965422-9 (Version None)
Quarter: 2006Q1

REPORT INFORMATION
  Report Type: 
  Country: None (occurrence: None)
  Receive Date: 20060201
  Receipt Date: 20051227
  Transmission Date: 20060701
  Serious: No
  Sender: FDA-Public Use
  Company Number: 2005PV006300

PATIENT
  Age: 64 Year
  Sex: Female
  Weight: 112.9457 kg

DRUGS (2)
  1. BYETTA [Suspect]
     Indication: DIABETES MELLITUS NON-INSULIN-DEPENDENT
     Dosage: 5 MCG; BID ; SC
     Route: 058
     Dates: start: 20051220
  2. TYLENOL (CAPLET) [Concomitant]

REACTIONS (6)
  - COUGH [None]
  - EAR PAIN [None]
  - HEADACHE [None]
  - NASOPHARYNGITIS [None]
  - PHARYNGOLARYNGEAL PAIN [None]
  - PYREXIA [None]
